FAERS Safety Report 9726360 (Version 1)
Quarter: 2013Q4

REPORT INFORMATION
  Report Type: Spontaneous
  Country: GB (occurrence: None)
  Receive Date: 20131129
  Receipt Date: 20131129
  Transmission Date: 20140711
  Serious: Yes (Disabling)
  Sender: FDA-Public Use
  Company Number: AUR-APL-2013-09752

PATIENT
  Age: 77 Year
  Sex: 0

DRUGS (8)
  1. SERTRALINE (SERTRALINE) [Suspect]
     Indication: PRODUCT USED FOR UNKNOWN INDICATION
     Dosage: 50 MG, 1 IN 1 D
     Route: 048
     Dates: start: 20131011, end: 20131030
  2. BISOPROLOL (BISOPROLOL) [Concomitant]
  3. DIGOXIN (DIGOXIN) [Concomitant]
  4. FUROSEMIDE (FUROSEMIDE) [Concomitant]
  5. GABAPENTIN (GABAPENTIN) [Suspect]
  6. ISOSORBIDE MONONITRATE (ISOSORBIDE MONONITRATE) [Concomitant]
  7. SPIRONOLACTONE (SPIRONOLACTONE) [Concomitant]
  8. THIAMINE (THIAMINE) [Concomitant]

REACTIONS (1)
  - Restless legs syndrome [None]
